FAERS Safety Report 12975928 (Version 5)
Quarter: 2020Q4

REPORT INFORMATION
  Report Type: Spontaneous
  Country: US (occurrence: US)
  Receive Date: 20161125
  Receipt Date: 20201204
  Transmission Date: 20210113
  Serious: Yes (Hospitalization)
  Sender: FDA-Public Use
  Company Number: US-ASTRAZENECA-2016SF24248

PATIENT
  Age: 56 Year
  Sex: Male
  Weight: 99.8 kg

DRUGS (5)
  1. ONGLYZA [Suspect]
     Active Substance: SAXAGLIPTIN HYDROCHLORIDE
     Indication: TYPE 2 DIABETES MELLITUS
     Dosage: UNKNOWN DOSE, DAILY
     Route: 048
     Dates: start: 2015, end: 201508
  2. BYDUREON [Suspect]
     Active Substance: EXENATIDE
     Route: 065
     Dates: start: 20161118
  3. ONGLYZA [Suspect]
     Active Substance: SAXAGLIPTIN HYDROCHLORIDE
     Indication: TYPE 2 DIABETES MELLITUS
     Route: 048
  4. PRANDIN [Concomitant]
     Active Substance: REPAGLINIDE
     Route: 065
  5. METFORMIN [Concomitant]
     Active Substance: METFORMIN HYDROCHLORIDE
     Route: 048
     Dates: end: 201605

REACTIONS (10)
  - Weight increased [Unknown]
  - Product preparation error [Unknown]
  - Device malfunction [Unknown]
  - Abdominal pain upper [Unknown]
  - Myocardial infarction [Unknown]
  - Incorrect dose administered [Unknown]
  - Device use issue [Unknown]
  - Device leakage [Unknown]
  - Intentional device misuse [Unknown]
  - Injection site pain [Unknown]

NARRATIVE: CASE EVENT DATE: 2015
